FAERS Safety Report 6530220-1 (Version None)
Quarter: 2010Q1

REPORT INFORMATION
  Report Type: 
  Country: None (occurrence: None)
  Receive Date: 20100107
  Receipt Date: 20091228
  Transmission Date: 20100710
  Serious: No
  Sender: FDA-Public Use
  Company Number: US-B.I. PHARMACEUTICALS,INC./RIDGEFIELD-2009-BP-13555BP

PATIENT
  Age: 51 Year
  Sex: Female
  Weight: 57.8 kg

DRUGS (11)
  1. CATAPRES-TTS-1 [Suspect]
     Indication: HEART RATE INCREASED
     Dosage: 0.1 MG
     Route: 061
     Dates: start: 20090813, end: 20091120
  2. CATAPRES-TTS-1 [Suspect]
     Indication: POSTURAL ORTHOSTATIC TACHYCARDIA SYNDROME
  3. CATAPRES-TTS-1 [Suspect]
     Indication: TACHYCARDIA
  4. SYNTHROID [Concomitant]
     Indication: HYPOTHYROIDISM
  5. KLONOPIN [Concomitant]
     Indication: SLEEP DISORDER
  6. SINGULAIR [Concomitant]
     Indication: ASTHMA
  7. RESCUE INHALER [Concomitant]
     Indication: ASTHMA
  8. XOPENEX [Concomitant]
     Route: 055
  9. VITAMIN D [Concomitant]
  10. CALCIUM [Concomitant]
  11. MULTI-VITAMIN [Concomitant]

REACTIONS (5)
  - APPLICATION SITE IRRITATION [None]
  - APPLICATION SITE PAIN [None]
  - APPLICATION SITE PRURITUS [None]
  - APPLICATION SITE VESICLES [None]
  - HEART RATE INCREASED [None]
